FAERS Safety Report 5643485-5 (Version None)
Quarter: 2008Q1

REPORT INFORMATION
  Report Type: 
  Country: None (occurrence: None)
  Receive Date: 20080228
  Receipt Date: 20080218
  Transmission Date: 20080703
  Serious: Yes (Hospitalization)
  Sender: FDA-Public Use
  Company Number: ES-AMGEN-UK266144

PATIENT
  Sex: Female

DRUGS (2)
  1. PANITUMUMAB [Suspect]
     Indication: COLORECTAL CANCER
     Route: 042
     Dates: start: 20080205
  2. IRINOTECAN [Concomitant]
     Route: 042
     Dates: start: 20080205

REACTIONS (2)
  - DIARRHOEA [None]
  - NEUTROPENIA [None]
